FAERS Safety Report 13433743 (Version 1)
Quarter: 2017Q2

REPORT INFORMATION
  Report Type: Spontaneous
  Country: US (occurrence: US)
  Receive Date: 20170412
  Receipt Date: 20170412
  Transmission Date: 20170830
  Serious: Yes (Hospitalization, Other)
  Sender: FDA-Public Use
  Company Number: US-BAUSCH-BL-2017-008964

PATIENT
  Sex: Male

DRUGS (1)
  1. XIFAXAN [Suspect]
     Active Substance: RIFAXIMIN
     Indication: HEPATIC FAILURE
     Route: 065
     Dates: start: 20160401

REACTIONS (11)
  - Syncope [Unknown]
  - Renal disorder [Unknown]
  - Spinal fracture [Unknown]
  - Bradycardia [Unknown]
  - Asthenia [Unknown]
  - Hospitalisation [Unknown]
  - Cardiac perforation [Unknown]
  - Fall [Unknown]
  - Spinal column stenosis [Unknown]
  - Myocardial infarction [Unknown]
  - Blood glucose decreased [Unknown]
